APPROVED DRUG PRODUCT: OBY-TRIM
Active Ingredient: PHENTERMINE HYDROCHLORIDE
Strength: 30MG
Dosage Form/Route: CAPSULE;ORAL
Application: A087764 | Product #001
Applicant: SHIRE RICHWOOD INC
Approved: Mar 18, 1982 | RLD: No | RS: No | Type: DISCN